FAERS Safety Report 19387012 (Version 1)
Quarter: 2021Q2

REPORT INFORMATION
  Report Type: Spontaneous
  Country: US (occurrence: US)
  Receive Date: 20210607
  Receipt Date: 20210607
  Transmission Date: 20210717
  Serious: No
  Sender: FDA-Public Use
  Company Number: None

PATIENT
  Age: 58 Year
  Sex: Male

DRUGS (1)
  1. SPRYCEL [Suspect]
     Active Substance: DASATINIB
     Dosage: ?          OTHER DOSE:140;?
     Route: 048
     Dates: start: 20210510

REACTIONS (2)
  - Pyrexia [None]
  - Rash [None]

NARRATIVE: CASE EVENT DATE: 20210531
